FAERS Safety Report 7212245-6 (Version None)
Quarter: 2011Q1

REPORT INFORMATION
  Report Type: 
  Country: None (occurrence: None)
  Receive Date: 20110106
  Receipt Date: 20101228
  Transmission Date: 20110831
  Serious: Yes (Hospitalization)
  Sender: FDA-Public Use
  Company Number: FI-ASTRAZENECA-2010SE59131

PATIENT
  Age: 26 Year
  Sex: Female

DRUGS (6)
  1. SEROQUEL XR [Suspect]
     Indication: SCHIZOPHRENIA, PARANOID TYPE
     Route: 048
     Dates: start: 20081203, end: 20081212
  2. KETIPINOR [Suspect]
     Route: 048
     Dates: start: 20081212, end: 20091201
  3. SEROQUEL XR [Suspect]
     Dosage: 500 MG - 800 MG
     Route: 048
     Dates: start: 20100104, end: 20100112
  4. KETIPINOR [Suspect]
     Dosage: 200 MG + 400 MG
     Route: 048
     Dates: start: 20090101, end: 20100112
  5. KETIPINOR [Suspect]
     Route: 048
     Dates: start: 20091208
  6. KETIPINOR [Suspect]
     Route: 048
     Dates: start: 20070114, end: 20081203

REACTIONS (2)
  - NEUTROPENIA [None]
  - LEUKOPENIA [None]
